FAERS Safety Report 8357729-2 (Version None)
Quarter: 2012Q2

REPORT INFORMATION
  Report Type: 
  Country: None (occurrence: None)
  Receive Date: 20120514
  Receipt Date: 20110622
  Transmission Date: 20120825
  Serious: No
  Sender: FDA-Public Use
  Company Number: US-TEVA-2011003253

PATIENT
  Sex: Female
  Weight: 81.72 kg

DRUGS (12)
  1. GEMFRIBROZIL [Concomitant]
     Dates: start: 20060101
  2. CARVEDILOL [Concomitant]
     Dates: start: 20060101
  3. AMLODIPINE BESYLATE [Concomitant]
     Dates: start: 20060101
  4. TAMSULOFIN [Concomitant]
     Dates: start: 20080101
  5. FOLIC ACID [Concomitant]
     Dates: start: 19910101
  6. NUVIGIL [Suspect]
     Indication: FATIGUE
     Dosage: 125 MILLIGRAM;
     Route: 048
     Dates: start: 20100810
  7. CLOMIPRAMINE HCL [Concomitant]
     Dates: start: 19960101
  8. SUCRAFATE [Concomitant]
     Dates: start: 20030101
  9. NEXIUM [Concomitant]
     Dates: start: 20030101
  10. CRESTOR [Concomitant]
     Dates: start: 20060101
  11. NITROFURANTOIN [Concomitant]
     Dates: start: 20080101
  12. BENICAR HCT [Concomitant]
     Dates: start: 20060101

REACTIONS (4)
  - HEPATIC ENZYME INCREASED [None]
  - DRUG INEFFECTIVE FOR UNAPPROVED INDICATION [None]
  - SPLENOMEGALY [None]
  - RED BLOOD CELL SEDIMENTATION RATE INCREASED [None]
